FAERS Safety Report 5808464-3 (Version None)
Quarter: 2008Q3

REPORT INFORMATION
  Report Type: 
  Country: None (occurrence: None)
  Receive Date: 20080714
  Receipt Date: 20080707
  Transmission Date: 20090109
  Serious: Yes (Life-Threatening, Hospitalization, Other)
  Sender: FDA-Public Use
  Company Number: US-BAYER-US-2007-042837

PATIENT
  Age: 57 Year
  Sex: Male

DRUGS (2)
  1. ULTRAVIST 300 [Suspect]
     Indication: COMPUTERISED TOMOGRAM ABDOMEN
     Dosage: TOTAL DAILY DOSE: 100 ML  UNIT DOSE: 150 ML
     Route: 042
     Dates: start: 20071106, end: 20071106
  2. READI-CAT [Concomitant]
     Indication: COMPUTERISED TOMOGRAM
     Route: 048
     Dates: start: 20071106, end: 20071106

REACTIONS (8)
  - ABASIA [None]
  - BACK PAIN [None]
  - BONE PAIN [None]
  - FEELING COLD [None]
  - HYPOAESTHESIA [None]
  - MOBILITY DECREASED [None]
  - NAUSEA [None]
  - RASH [None]
